FAERS Safety Report 14149856 (Version 1)
Quarter: 2017Q4

REPORT INFORMATION
  Report Type: Spontaneous
  Country: CM (occurrence: CM)
  Receive Date: 20171101
  Receipt Date: 20171101
  Transmission Date: 20180321
  Serious: Yes (Hospitalization)
  Sender: FDA-Public Use
  Company Number: PHHY2017CM159734

PATIENT
  Age: 1 Year
  Sex: Male

DRUGS (1)
  1. CATAFLAM [Suspect]
     Active Substance: DICLOFENAC POTASSIUM
     Indication: PYREXIA
     Dosage: UNK UNK, TID
     Route: 048
     Dates: start: 20170918, end: 20171002

REACTIONS (2)
  - Product use in unapproved indication [Unknown]
  - Malaria [Recovered/Resolved]

NARRATIVE: CASE EVENT DATE: 20170918
